FAERS Safety Report 9911929 (Version 1)
Quarter: 2014Q1

REPORT INFORMATION
  Report Type: Spontaneous
  Country: US (occurrence: US)
  Receive Date: 20140219
  Receipt Date: 20140219
  Transmission Date: 20141002
  Serious: No
  Sender: FDA-Public Use
  Company Number: US-MYLANLABS-2013S1020300

PATIENT
  Age: 46 Year
  Sex: Female
  Weight: 61.24 kg

DRUGS (3)
  1. EPIPEN 2-PAK [Suspect]
     Indication: ARTHROPOD STING
     Route: 030
  2. BENADRYL [Concomitant]
     Indication: MULTIPLE ALLERGIES
  3. ALLERGY MEDICATION [Concomitant]
     Indication: MULTIPLE ALLERGIES

REACTIONS (1)
  - Device failure [Recovered/Resolved]
